FAERS Safety Report 23414897 (Version 1)
Quarter: 2024Q1

REPORT INFORMATION
  Report Type: Report from Study
  Country: US (occurrence: US)
  Receive Date: 20240118
  Receipt Date: 20240118
  Transmission Date: 20240410
  Serious: No
  Sender: FDA-Public Use
  Company Number: US-ALXN-202401USA000968US

PATIENT
  Sex: Female

DRUGS (2)
  1. ULTOMIRIS [Suspect]
     Active Substance: RAVULIZUMAB-CWVZ
     Indication: Paroxysmal nocturnal haemoglobinuria
     Dosage: 3300 MILLIGRAM, Q56
     Route: 042
     Dates: start: 20230406
  2. PENICILLIN [Concomitant]
     Active Substance: PENICILLIN
     Indication: Immunodeficiency
     Dosage: UNK
     Route: 065

REACTIONS (1)
  - Toothache [Unknown]
